FAERS Safety Report 7590481-7 (Version None)
Quarter: 2011Q3

REPORT INFORMATION
  Report Type: 
  Country: None (occurrence: None)
  Receive Date: 20110705
  Receipt Date: 20110622
  Transmission Date: 20111222
  Serious: Yes (Life-Threatening, Other)
  Sender: FDA-Public Use
  Company Number: JP-GENZYME-THYM-1002556

PATIENT
  Sex: Male
  Weight: 41 kg

DRUGS (81)
  1. FLUDARA [Concomitant]
     Indication: BONE MARROW CONDITIONING REGIMEN
     Dosage: UNK
     Route: 065
     Dates: start: 20101031
  2. STRONGER NEO MINOPHAGEN C [Concomitant]
     Indication: PROPHYLAXIS
     Dosage: UNK
     Route: 065
     Dates: start: 20100413, end: 20100609
  3. GLUTATHIONE [Concomitant]
     Indication: PROPHYLAXIS
     Dosage: UNK
     Route: 065
     Dates: start: 20100413, end: 20100609
  4. MEROPENEM [Concomitant]
     Indication: INFECTION PROPHYLAXIS
     Dosage: UNK
     Route: 065
     Dates: start: 20100421, end: 20100504
  5. FILGRASTIM [Concomitant]
     Indication: WHITE BLOOD CELL COUNT INCREASED
     Dosage: UNK
     Route: 065
     Dates: start: 20100423, end: 20100507
  6. PENTAMIDINE ISETHIONATE [Concomitant]
     Dosage: UNK
     Route: 065
     Dates: start: 20100709, end: 20100709
  7. URSODIOL [Concomitant]
     Indication: PROPHYLAXIS
     Dosage: UNK
     Route: 065
     Dates: start: 20100413, end: 20100805
  8. IRRADIATED PLATELET CONCENTRATE [Concomitant]
     Indication: ACUTE LYMPHOCYTIC LEUKAEMIA
     Dosage: 10 U, UNK
     Route: 065
     Dates: start: 20100414, end: 20100414
  9. IRRADIATED ERYTHROCYTE CONCENTRATE [Concomitant]
     Dosage: 2 U, UNK
     Route: 065
     Dates: start: 20101014, end: 20101014
  10. ANTI-THYMOCYTE GLOBULIN NOS [Concomitant]
     Indication: PREMEDICATION
     Dosage: UNK
     Route: 065
     Dates: start: 20101031
  11. CYTARABINE [Concomitant]
     Indication: ACUTE LYMPHOCYTIC LEUKAEMIA
     Dosage: UNK
     Route: 065
     Dates: start: 20100325, end: 20100412
  12. FAMOTIDINE [Concomitant]
     Indication: PROPHYLAXIS
     Dosage: UNK
     Route: 065
     Dates: start: 20100413, end: 20100519
  13. STRONGER NEO MINOPHAGEN C [Concomitant]
     Dosage: UNK
     Route: 065
     Dates: start: 20100908, end: 20100924
  14. DALTEPARIN SODIUM [Concomitant]
     Indication: ANTICOAGULANT THERAPY
     Dosage: UNK
     Route: 065
     Dates: start: 20100413, end: 20100526
  15. MICAFUNGIN SODIUM [Concomitant]
     Indication: INFECTION PROPHYLAXIS
     Dosage: UNK
     Route: 065
     Dates: start: 20100413, end: 20100423
  16. FUROSEMIDE [Concomitant]
     Dosage: UNK
     Route: 065
     Dates: start: 20100930, end: 20101006
  17. SODIUM BICARBONATE [Concomitant]
     Dosage: UNK
     Route: 065
     Dates: start: 20100907, end: 20100913
  18. VORICONAZOLE [Concomitant]
     Indication: INFECTION PROPHYLAXIS
     Dosage: UNK
     Route: 065
     Dates: start: 20100424, end: 20100506
  19. IRRADIATED ERYTHROCYTE CONCENTRATE [Concomitant]
     Dosage: 2 U, UNK
     Route: 065
     Dates: start: 20100420, end: 20100420
  20. IRRADIATED ERYTHROCYTE CONCENTRATE [Concomitant]
     Dosage: 2 U, UNK
     Route: 065
     Dates: start: 20100428, end: 20100428
  21. TACROLIMUS [Concomitant]
     Indication: GRAFT VERSUS HOST DISEASE
     Dosage: UNK
     Route: 065
     Dates: start: 20100421, end: 20100516
  22. ACYCLOVIR [Concomitant]
     Indication: INFECTION PROPHYLAXIS
     Dosage: UNK
     Route: 065
     Dates: start: 20100423, end: 20100522
  23. METHOTREXATE [Concomitant]
     Dosage: UNK
     Route: 065
     Dates: start: 20100424, end: 20100424
  24. VANCOMYCIN HYCHLORIDE [Concomitant]
     Dosage: UNK
     Route: 065
     Dates: start: 20100413, end: 20100514
  25. ETHYL ICOSAPENTATE [Concomitant]
     Indication: PROPHYLAXIS
     Dosage: UNK
     Route: 065
     Dates: start: 20100413, end: 20100709
  26. IRRADIATED PLATELET CONCENTRATE [Concomitant]
     Dosage: 10 U, UNK
     Route: 065
     Dates: start: 20100429, end: 20100503
  27. IRRADIATED PLATELET CONCENTRATE [Concomitant]
     Dosage: 10 U, UNK
     Route: 065
     Dates: start: 20100513, end: 20100516
  28. IRRADIATED PLATELET CONCENTRATE [Concomitant]
     Dosage: 10 U, UNK
     Route: 065
     Dates: start: 20100520, end: 20100520
  29. IRRADIATED ERYTHROCYTE CONCENTRATE [Concomitant]
     Indication: ACUTE LYMPHOCYTIC LEUKAEMIA
     Dosage: 2 U, UNK
     Route: 065
     Dates: start: 20100416, end: 20100416
  30. IRRADIATED ERYTHROCYTE CONCENTRATE [Concomitant]
     Dosage: 2 U, UNK
     Route: 065
     Dates: start: 20101005, end: 20101005
  31. IRRADIATED ERYTHROCYTE CONCENTRATE [Concomitant]
     Dosage: 2 U, UNK
     Route: 065
     Dates: start: 20101022, end: 20101022
  32. ETOPOSIDE [Concomitant]
     Indication: ACUTE LYMPHOCYTIC LEUKAEMIA
     Dosage: UNK
     Route: 065
     Dates: start: 20100325, end: 20100412
  33. IMIPEM [Concomitant]
     Dosage: UNK
     Route: 065
     Dates: start: 20100505, end: 20100514
  34. GRANISETRON HCL [Concomitant]
     Indication: PROPHYLAXIS OF NAUSEA AND VOMITING
     Dosage: UNK
     Route: 065
     Dates: start: 20100413, end: 20100424
  35. FUROSEMIDE [Concomitant]
     Indication: PROPHYLAXIS
     Dosage: UNK
     Route: 065
     Dates: start: 20100414, end: 20100503
  36. ACETAZOLAMIDE SODIUM [Concomitant]
     Indication: INFECTION PROPHYLAXIS
     Dosage: UNK
     Route: 065
     Dates: start: 20100416, end: 20100419
  37. MINOCYCLINE HYDROCHLORIDE [Concomitant]
     Indication: INFECTION PROPHYLAXIS
     Dosage: UNK
     Route: 065
     Dates: start: 20100418, end: 20100506
  38. MELPHALAN HYDROCHLORIDE [Concomitant]
     Indication: BONE MARROW CONDITIONING REGIMEN
     Dosage: UNK
     Route: 065
     Dates: start: 20100419, end: 20100420
  39. METHYLPREDNISOLONE SODIUM SUCCINATE [Concomitant]
     Indication: ACUTE LYMPHOCYTIC LEUKAEMIA
     Dosage: UNK
     Route: 065
     Dates: start: 20100420, end: 20100421
  40. PENTAMIDINE ISETHIONATE [Concomitant]
     Indication: ANTIFUNGAL PROPHYLAXIS
     Dosage: UNK
     Route: 065
     Dates: start: 20100506, end: 20100506
  41. PHENYTOIN [Concomitant]
     Indication: CONVULSION PROPHYLAXIS
     Dosage: UNK
     Route: 065
     Dates: start: 20100414, end: 20100417
  42. PREDNISOLONE [Concomitant]
     Indication: PROPHYLAXIS AGAINST GRAFT VERSUS HOST DISEASE
     Dosage: UNK
     Route: 065
     Dates: start: 20100521, end: 20100907
  43. IRRADIATED ERYTHROCYTE CONCENTRATE [Concomitant]
     Dosage: 2 U, UNK
     Route: 065
     Dates: start: 20100918, end: 20100918
  44. FAMOTIDINE [Concomitant]
     Dosage: UNK
     Route: 065
     Dates: start: 20100521
  45. BUSULFAN [Concomitant]
     Indication: BONE MARROW CONDITIONING REGIMEN
     Dosage: UNK
     Route: 065
     Dates: start: 20100413, end: 20100417
  46. STRONGER NEO MINOPHAGEN C [Concomitant]
     Dosage: UNK
     Route: 065
     Dates: start: 20101001
  47. TACROLIMUS [Concomitant]
     Indication: PROPHYLAXIS AGAINST GRAFT VERSUS HOST DISEASE
     Dosage: UNK
     Route: 065
     Dates: start: 20100517, end: 20100715
  48. METHOTREXATE [Concomitant]
     Indication: PROPHYLAXIS AGAINST GRAFT VERSUS HOST DISEASE
     Dosage: UNK
     Route: 065
     Dates: start: 20100423, end: 20100423
  49. METHOTREXATE [Concomitant]
     Dosage: UNK
     Route: 065
     Dates: start: 20100428, end: 20100428
  50. VORICONAZOLE [Concomitant]
     Dosage: UNK
     Route: 065
     Dates: start: 20100507, end: 20101015
  51. PENTAMIDINE ISETHIONATE [Concomitant]
     Dosage: UNK
     Route: 065
     Dates: start: 20100805, end: 20100805
  52. IRRADIATED PLATELET CONCENTRATE [Concomitant]
     Dosage: 10 U, UNK
     Route: 065
     Dates: start: 20100908, end: 20100915
  53. IRRADIATED ERYTHROCYTE CONCENTRATE [Concomitant]
     Dosage: 2 U, UNK
     Route: 065
     Dates: start: 20100512, end: 20100512
  54. IRRADIATED ERYTHROCYTE CONCENTRATE [Concomitant]
     Dosage: 2 U, UNK
     Route: 065
     Dates: start: 20100629, end: 20100629
  55. CYTARABINE [Concomitant]
     Indication: BONE MARROW TRANSPLANT
     Dosage: UNK
     Route: 065
     Dates: start: 20100417, end: 20100418
  56. GLUTATHIONE [Concomitant]
     Dosage: UNK
     Route: 065
     Dates: start: 20100908, end: 20100924
  57. PREDNISOLONE SODIUM SUCCINATE INJ [Concomitant]
     Dosage: UNK
     Route: 065
     Dates: start: 20100530, end: 20100603
  58. PANIPENEM BETAMIPRON [Concomitant]
     Indication: INFECTION PROPHYLAXIS
     Dosage: UNK
     Route: 065
     Dates: start: 20100907
  59. POLYMYXIN B SULFATE [Concomitant]
     Indication: INFECTION PROPHYLAXIS
     Dosage: UNK
     Route: 065
     Dates: start: 20100413, end: 20100521
  60. PREDNISOLONE [Concomitant]
     Dosage: UNK
     Route: 065
     Dates: start: 20100521, end: 20100625
  61. LEVOFLOXACIN [Concomitant]
     Indication: INFECTION PROPHYLAXIS
     Dosage: UNK
     Route: 065
     Dates: start: 20100621
  62. IRRADIATED PLATELET CONCENTRATE [Concomitant]
     Dosage: 10 U, UNK
     Route: 065
     Dates: start: 20100417, end: 20100419
  63. IRRADIATED PLATELET CONCENTRATE [Concomitant]
     Dosage: 10 U, UNK
     Route: 065
     Dates: start: 20100921, end: 20101021
  64. THYMOGLOBULIN [Suspect]
     Indication: BONE MARROW CONDITIONING REGIMEN
     Dosage: 55 MG, QD
     Route: 042
     Dates: start: 20100420, end: 20100421
  65. TEICOPLANIN [Concomitant]
     Indication: INFECTION PROPHYLAXIS
     Dosage: UNK
     Route: 065
     Dates: start: 20100413, end: 20100426
  66. GRANISETRON HCL [Concomitant]
     Dosage: UNK
     Route: 065
     Dates: start: 20101001
  67. HYDROCORTISONE SODIUM SUCCINATE [Concomitant]
     Indication: PROPHYLAXIS OF NAUSEA AND VOMITING
     Dosage: UNK
     Route: 065
     Dates: start: 20100413, end: 20100424
  68. HYDROCORTISONE SODIUM SUCCINATE [Concomitant]
     Indication: PREMEDICATION
  69. SODIUM BICARBONATE [Concomitant]
     Indication: PROPHYLAXIS
     Dosage: UNK
     Route: 065
     Dates: start: 20100416, end: 20100419
  70. PREDNISOLONE SODIUM SUCCINATE INJ [Concomitant]
     Indication: PROPHYLAXIS AGAINST GRAFT VERSUS HOST DISEASE
     Dosage: UNK
     Route: 065
     Dates: start: 20100422, end: 20100520
  71. VANCOMYCIN HYCHLORIDE [Concomitant]
     Indication: INFECTION PROPHYLAXIS
     Dosage: UNK
     Route: 065
     Dates: start: 20100426, end: 20100509
  72. IRRADIATED PLATELET CONCENTRATE [Concomitant]
     Dosage: 10 U, UNK
     Route: 065
     Dates: start: 20100421, end: 20100427
  73. IRRADIATED PLATELET CONCENTRATE [Concomitant]
     Dosage: 10 U, UNK
     Route: 065
     Dates: start: 20100505, end: 20100511
  74. IRRADIATED ERYTHROCYTE CONCENTRATE [Concomitant]
     Dosage: 2 U, UNK
     Route: 065
     Dates: start: 20100504, end: 20100504
  75. IMIPEM [Concomitant]
     Indication: INFECTION PROPHYLAXIS
     Dosage: UNK
     Route: 065
     Dates: start: 20100413, end: 20100421
  76. GRANISETRON HCL [Concomitant]
     Dosage: UNK
     Route: 065
     Dates: start: 20100908, end: 20100923
  77. GLUTATHIONE [Concomitant]
     Dosage: UNK
     Route: 065
     Dates: start: 20101001
  78. ACETAZOLAMIDE SODIUM [Concomitant]
     Indication: PROPHYLAXIS
     Dosage: UNK
     Route: 065
     Dates: start: 20100908, end: 20100913
  79. PENTAMIDINE ISETHIONATE [Concomitant]
     Dosage: UNK
     Route: 065
     Dates: start: 20100603, end: 20100603
  80. PENTAMIDINE ISETHIONATE [Concomitant]
     Dosage: UNK
     Route: 065
     Dates: start: 20100928, end: 20100928
  81. IRRADIATED ERYTHROCYTE CONCENTRATE [Concomitant]
     Dosage: 2 U, UNK
     Route: 065
     Dates: start: 20100928, end: 20100928

REACTIONS (11)
  - GASTRITIS [None]
  - GASTROINTESTINAL MUCOSAL DISORDER [None]
  - HEPATIC FUNCTION ABNORMAL [None]
  - ACUTE GRAFT VERSUS HOST DISEASE IN SKIN [None]
  - PYREXIA [None]
  - DIARRHOEA [None]
  - STEM CELL TRANSPLANT [None]
  - ENGRAFT FAILURE [None]
  - CYSTITIS HAEMORRHAGIC [None]
  - ACUTE LYMPHOCYTIC LEUKAEMIA RECURRENT [None]
  - HYPERTENSION [None]
